FAERS Safety Report 8816586 (Version 1)
Quarter: 2012Q4

REPORT INFORMATION
  Report Type: Spontaneous
  Country: US (occurrence: None)
  Receive Date: 20121001
  Receipt Date: 20121001
  Transmission Date: 20130627
  Serious: Yes (Hospitalization)
  Sender: FDA-Public Use
  Company Number: None

PATIENT
  Sex: Male
  Weight: 59.8 kg

DRUGS (1)
  1. ALFA 2 INTERFERON 2B (INTRON-A) [Suspect]
     Dates: end: 20120919

REACTIONS (11)
  - Weight decreased [None]
  - Confusional state [None]
  - Memory impairment [None]
  - Asthenia [None]
  - Fall [None]
  - Mobility decreased [None]
  - Aspartate aminotransferase increased [None]
  - Alanine aminotransferase increased [None]
  - Dizziness [None]
  - Tachycardia [None]
  - Dehydration [None]
